FAERS Safety Report 4517705-4 (Version None)
Quarter: 2004Q4

REPORT INFORMATION
  Report Type: 
  Country: None (occurrence: None)
  Receive Date: 20041130
  Receipt Date: 20041115
  Transmission Date: 20050328
  Serious: Yes (Other)
  Sender: FDA-Public Use
  Company Number: 25641

PATIENT
  Age: 48 Year
  Sex: Male
  Weight: 60.8 kg

DRUGS (5)
  1. ALDARA [Suspect]
     Indication: SKIN PAPILLOMA
     Dosage: TOPICAL
     Route: 061
     Dates: start: 20030101, end: 20031101
  2. ACYCLOVIR [Concomitant]
  3. MAGNESIUM [Concomitant]
  4. POTASSIUM [Concomitant]
  5. PROTONIX [Concomitant]

REACTIONS (10)
  - APPLICATION SITE DESQUAMATION [None]
  - APPLICATION SITE ERYTHEMA [None]
  - APPLICATION SITE INFLAMMATION [None]
  - APPLICATION SITE NODULE [None]
  - APPLICATION SITE OEDEMA [None]
  - APPLICATION SITE PAIN [None]
  - CUTANEOUS LUPUS ERYTHEMATOSUS [None]
  - GRAFT VERSUS HOST DISEASE [None]
  - PAIN IN EXTREMITY [None]
  - SKIN FISSURES [None]
